FAERS Safety Report 23824772 (Version 2)
Quarter: 2025Q1

REPORT INFORMATION
  Report Type: Report from Study
  Country: CO (occurrence: CO)
  Receive Date: 20240507
  Receipt Date: 20250218
  Transmission Date: 20250409
  Serious: Yes (Death, Other)
  Sender: ASTELLAS
  Company Number: CO-ASTELLAS-2024US012953

PATIENT
  Age: 85 Year
  Sex: Male
  Weight: 85 kg

DRUGS (1)
  1. XTANDI [Suspect]
     Active Substance: ENZALUTAMIDE
     Indication: Hormone-refractory prostate cancer
     Dosage: 160 MG, ONCE DAILY
     Route: 048
     Dates: start: 20220827

REACTIONS (3)
  - Death [Fatal]
  - Delirium [Unknown]
  - Seizure [Unknown]

NARRATIVE: CASE EVENT DATE: 20250101
